FAERS Safety Report 23552186 (Version 1)
Quarter: 2024Q1

REPORT INFORMATION
  Report Type: Spontaneous
  Country: FR (occurrence: FR)
  Receive Date: 20240222
  Receipt Date: 20240222
  Transmission Date: 20240409
  Serious: Yes (Hospitalization)
  Sender: FDA-Public Use
  Company Number: None

PATIENT
  Age: 70 Year
  Sex: Male
  Weight: 70 kg

DRUGS (4)
  1. OXALIPLATIN [Suspect]
     Active Substance: OXALIPLATIN
     Indication: Mantle cell lymphoma stage IV
     Dosage: TIME INTERVAL: CYCLICAL: OXALIPLATIN 100 MG/M? OR 200.00 MG TOTAL DOSE IV ON D
     Route: 042
     Dates: start: 20230705
  2. RITUXIMAB [Suspect]
     Active Substance: RITUXIMAB
     Indication: Mantle cell lymphoma stage IV
     Dosage: TIME INTERVAL: CYCLICAL: RITUXIMAB 375 MG/M? OR 700.00 MG TOTAL DOSE IV ON D1 ,  ((MAMMAL/HAMSTER...
     Route: 042
     Dates: start: 20230705
  3. DEXAMETHASONE [Suspect]
     Active Substance: DEXAMETHASONE
     Indication: Mantle cell lymphoma stage IV
     Dosage: TIME INTERVAL: CYCLICAL: DEXAMETHASONE 20 MG (ADJUSTED DOSE) TOTAL DOSE IV OR ORAL FROM D1 TO D4
     Route: 042
     Dates: start: 20230705
  4. CYTARABINE [Suspect]
     Active Substance: CYTARABINE
     Indication: Mantle cell lymphoma stage IV
     Dosage: TIME INTERVAL: CYCLICAL: ARACYTINE 1000 MG/M? (ADJUSTED DOSE) OR 1,900.00 MG TOTAL DOSE IV ON D1 ...
     Route: 042
     Dates: start: 20230705

REACTIONS (1)
  - Condition aggravated [Not Recovered/Not Resolved]

NARRATIVE: CASE EVENT DATE: 20230707
